FAERS Safety Report 7095040-0 (Version None)
Quarter: 2010Q4

REPORT INFORMATION
  Report Type: 
  Country: None (occurrence: None)
  Receive Date: 20101111
  Receipt Date: 20101104
  Transmission Date: 20110411
  Serious: No
  Sender: FDA-Public Use
  Company Number: US-BIOGENIDEC-2010BI038915

PATIENT
  Age: 48 Year
  Sex: Female

DRUGS (5)
  1. TYSABRI [Suspect]
     Indication: MULTIPLE SCLEROSIS
     Route: 042
     Dates: start: 20070101
  2. DAILY VITAMIN [Concomitant]
  3. LOVAZA [Concomitant]
  4. VITAMIN D [Concomitant]
  5. CALCIUM [Concomitant]

REACTIONS (5)
  - HOT FLUSH [None]
  - INSOMNIA [None]
  - MENOPAUSE [None]
  - PALPITATIONS [None]
  - WEIGHT INCREASED [None]
